FAERS Safety Report 6139981-7 (Version None)
Quarter: 2009Q1

REPORT INFORMATION
  Report Type: 
  Country: None (occurrence: None)
  Receive Date: 20090324
  Receipt Date: 20090320
  Transmission Date: 20090719
  Serious: Yes (Hospitalization)
  Sender: FDA-Public Use
  Company Number: 189155USA

PATIENT
  Age: 85 Year
  Sex: Female

DRUGS (6)
  1. BISOPROLOL FUMARATE [Suspect]
     Dosage: 1 IN 1 D (1.25 MG, 1 IN 1 D) , ORAL
     Route: 048
  2. TRIATEC [Suspect]
     Dosage: 1 IN 1 D (2.5 MG, 1 IN 1 D), ORAL
     Route: 048
  3. VASTEN [Concomitant]
  4. NEXIUM [Concomitant]
  5. PLAVIX [Concomitant]
  6. KARDEGIC [Concomitant]

REACTIONS (8)
  - DRUG INTERACTION [None]
  - FACE INJURY [None]
  - FALL [None]
  - HAEMATOCHEZIA [None]
  - HAEMATOMA [None]
  - HYPOTENSION [None]
  - ISCHAEMIC CARDIOMYOPATHY [None]
  - MICROCYTIC ANAEMIA [None]
